FAERS Safety Report 9185925 (Version 1)
Quarter: 2013Q1

REPORT INFORMATION
  Report Type: Spontaneous
  Country: US (occurrence: US)
  Receive Date: 20130325
  Receipt Date: 20130325
  Transmission Date: 20140127
  Serious: Yes (Hospitalization)
  Sender: FDA-Public Use
  Company Number: US-UCBSA-081193

PATIENT
  Age: 76 Year
  Sex: Female

DRUGS (8)
  1. CIMZIA [Suspect]
     Dosage: TWO INDUCTION DOSES OF 400MG
     Dates: start: 201212, end: 201212
  2. DIOVAN [Concomitant]
     Indication: HYPERTENSION
     Dosage: 320MG DAILY
  3. OMEPRAZOLE [Concomitant]
     Indication: GASTROOESOPHAGEAL REFLUX DISEASE
     Dosage: 40MG DAILY
  4. PREMARIN [Concomitant]
     Dosage: 0.625MG DAILY
  5. SYNTHROID [Concomitant]
     Indication: THYROID DISORDER
     Dosage: 50MCG DAILY
  6. CALCIUM WITH VITAMIN D [Concomitant]
     Dosage: DAILY
  7. PREDNISONE [Concomitant]
     Dosage: 5MG DAILYX MANY YEARS
  8. ETODOLAC [Concomitant]

REACTIONS (1)
  - Pneumonia [Recovering/Resolving]
